FAERS Safety Report 21475913 (Version 2)
Quarter: 2022Q4

REPORT INFORMATION
  Report Type: Report from Study
  Country: US (occurrence: US)
  Receive Date: 20221019
  Receipt Date: 20221122
  Transmission Date: 20230113
  Serious: No
  Sender: FDA-Public Use
  Company Number: US-BRISTOL-MYERS SQUIBB COMPANY-2022-123491

PATIENT
  Age: 53 Year
  Sex: Female

DRUGS (2)
  1. CAMZYOS [Suspect]
     Active Substance: MAVACAMTEN
     Indication: Hypertrophic cardiomyopathy
     Route: 048
     Dates: start: 202210
  2. CAMZYOS [Suspect]
     Active Substance: MAVACAMTEN
     Route: 065

REACTIONS (3)
  - Fatigue [Recovering/Resolving]
  - Abdominal discomfort [Unknown]
  - Flatulence [Unknown]
